FAERS Safety Report 9011263 (Version 2)
Quarter: 2013Q2

REPORT INFORMATION
  Report Type: Spontaneous
  Country: US (occurrence: US)
  Receive Date: 20130109
  Receipt Date: 20130513
  Transmission Date: 20140414
  Serious: No
  Sender: FDA-Public Use
  Company Number: US-BIOGENIDEC-2012BI060854

PATIENT
  Age: 56 Year
  Sex: Female

DRUGS (3)
  1. TYSABRI [Suspect]
     Indication: MULTIPLE SCLEROSIS
     Route: 042
     Dates: start: 20120911
  2. EFFEXOR [Concomitant]
     Indication: DEPRESSION
  3. BACLOFEN [Concomitant]
     Indication: MUSCLE SPASMS
     Dates: start: 2010

REACTIONS (3)
  - Fall [Recovered/Resolved]
  - Rib fracture [Recovered/Resolved]
  - Head injury [Recovered/Resolved]
